FAERS Safety Report 6737694-1 (Version None)
Quarter: 2010Q2

REPORT INFORMATION
  Report Type: 
  Country: None (occurrence: None)
  Receive Date: 20100524
  Receipt Date: 20100510
  Transmission Date: 20101027
  Serious: Yes (Other)
  Sender: FDA-Public Use
  Company Number: PHHY2010US30520

PATIENT
  Sex: Male

DRUGS (1)
  1. ZADITOR [Suspect]

REACTIONS (1)
  - CATARACT OPERATION [None]
